FAERS Safety Report 6032337-7 (Version None)
Quarter: 2009Q1

REPORT INFORMATION
  Report Type: 
  Country: None (occurrence: None)
  Receive Date: 20090109
  Receipt Date: 20090105
  Transmission Date: 20090719
  Serious: Yes (Hospitalization)
  Sender: FDA-Public Use
  Company Number: FR-JNJFOC-20090100392

PATIENT
  Age: 82 Year
  Sex: Male

DRUGS (12)
  1. TAVANIC [Suspect]
     Indication: LUNG INFECTION
     Route: 065
  2. ROCEPHIN [Suspect]
     Indication: LUNG INFECTION
     Route: 065
  3. AUGMENTIN '125' [Suspect]
     Indication: LUNG INFECTION
     Route: 065
  4. PREVISCAN [Suspect]
     Indication: PULMONARY EMBOLISM
     Route: 048
  5. LERCAN [Suspect]
     Indication: ESSENTIAL HYPERTENSION
     Route: 048
  6. AVODART [Suspect]
     Indication: BENIGN PROSTATIC HYPERPLASIA
     Route: 048
  7. PERMIXON [Suspect]
     Indication: MICTURITION DISORDER
     Route: 048
  8. NOVONORM [Suspect]
     Indication: TYPE 2 DIABETES MELLITUS
     Route: 048
  9. HEMIGOXINE NATIVELLE [Suspect]
     Indication: CARDIAC FAILURE
     Route: 048
  10. CARDENSIEL [Suspect]
     Indication: DRUG USE FOR UNKNOWN INDICATION
     Route: 048
  11. LASILIX [Suspect]
     Indication: OEDEMA
     Route: 048
  12. DILTIAZEM HCL [Suspect]
     Indication: HYPERTENSION
     Route: 048

REACTIONS (1)
  - ECZEMA [None]
